FAERS Safety Report 6964844-4 (Version None)
Quarter: 2010Q3

REPORT INFORMATION
  Report Type: 
  Country: None (occurrence: None)
  Receive Date: 20100903
  Receipt Date: 20100824
  Transmission Date: 20110219
  Serious: Yes (Other)
  Sender: FDA-Public Use
  Company Number: TN-TYCO HEALTHCARE/MALLINCKRODT-T201001811

PATIENT
  Age: 26 Year
  Sex: Male
  Weight: 51 kg

DRUGS (3)
  1. SODIUM IODIDE I 131 [Suspect]
     Indication: BASEDOW'S DISEASE
     Dosage: 10 MCI, SINGLE
     Dates: start: 20070101, end: 20070101
  2. BENZYLTHIOURACIL [Concomitant]
     Indication: PREMEDICATION
  3. NORMOCARDYL [Concomitant]
     Indication: PREMEDICATION

REACTIONS (1)
  - HYPOTHYROIDISM [None]
